FAERS Safety Report 6161929-X (Version None)
Quarter: 2009Q2

REPORT INFORMATION
  Report Type: 
  Country: None (occurrence: None)
  Receive Date: 20090417
  Receipt Date: 20090417
  Transmission Date: 20091009
  Serious: Yes (Other)
  Sender: FDA-Public Use
  Company Number: None

PATIENT
  Age: 41 Year

DRUGS (1)
  1. NICOTINE [Suspect]
     Indication: SMOKING CESSATION THERAPY
     Dosage: 7 MG, QD, TRANSDERMAL
     Route: 062
     Dates: start: 20090402, end: 20090404

REACTIONS (7)
  - ABDOMINAL PAIN [None]
  - AURICULAR SWELLING [None]
  - DYSPNOEA [None]
  - EYE SWELLING [None]
  - MALAISE [None]
  - PHARYNGEAL OEDEMA [None]
  - URTICARIA [None]
